FAERS Safety Report 20411867 (Version 1)
Quarter: 2022Q1

REPORT INFORMATION
  Report Type: Spontaneous
  Country: US (occurrence: US)
  Receive Date: 20220201
  Receipt Date: 20220201
  Transmission Date: 20220423
  Serious: Yes (Death, Other)
  Sender: FDA-Public Use
  Company Number: US-PFIZER INC-202101198743

PATIENT
  Age: 61 Year
  Sex: Male

DRUGS (1)
  1. INLYTA [Suspect]
     Active Substance: AXITINIB
     Dosage: 5 MG
     Dates: end: 202111

REACTIONS (4)
  - Death [Fatal]
  - Thrombosis [Unknown]
  - Neoplasm progression [Unknown]
  - Bone disorder [Unknown]

NARRATIVE: CASE EVENT DATE: 20211129
